FAERS Safety Report 23133982 (Version 2)
Quarter: 2023Q4

REPORT INFORMATION
  Report Type: Report from Study
  Country: JP (occurrence: JP)
  Receive Date: 20231101
  Receipt Date: 20231122
  Transmission Date: 20240110
  Serious: Yes (Hospitalization, Other)
  Sender: FDA-Public Use
  Company Number: JP-AstraZeneca-2023A242688

PATIENT
  Age: 67 Year
  Sex: Male

DRUGS (41)
  1. ENFORTUMAB VEDOTIN [Suspect]
     Active Substance: ENFORTUMAB VEDOTIN
     Indication: Bladder cancer
     Dosage: 1.25 MG/KG, OTHER (1.25MG/KG ONCE/SINGLE ADMINISTRATION)
     Route: 042
     Dates: start: 20230511, end: 20230511
  2. ENFORTUMAB VEDOTIN [Suspect]
     Active Substance: ENFORTUMAB VEDOTIN
     Dosage: 1.25 MG/KG, OTHER (1.25MG/KG ONCE/SINGLE ADMINISTRATION)
     Route: 042
     Dates: start: 20230519, end: 20230519
  3. DURVALUMAB [Suspect]
     Active Substance: DURVALUMAB
     Indication: Bladder cancer
     Dosage: 1500 MG, OTHER (ONCE/SINGLE ADMINISTRATION)
     Route: 042
     Dates: start: 20230511, end: 20230511
  4. TREMELIMUMAB [Suspect]
     Active Substance: TREMELIMUMAB
     Indication: Bladder cancer
     Dosage: 75 MG, OTHER (ONCE/SINGLE ADMINISTRATION)
     Route: 042
     Dates: start: 20230511, end: 20230511
  5. URSODIOL [Concomitant]
     Active Substance: URSODIOL
     Indication: Liver disorder
     Route: 048
     Dates: start: 20230525, end: 20230626
  6. URSODIOL [Concomitant]
     Active Substance: URSODIOL
     Route: 048
     Dates: start: 20230627
  7. REBAMIPIDE [Concomitant]
     Active Substance: REBAMIPIDE
     Indication: Gastritis prophylaxis
     Route: 048
     Dates: start: 20230817
  8. HEPARINOID [Concomitant]
     Indication: Stevens-Johnson syndrome
     Dosage: 1 APPLICATION TWO TIMES A DAY
     Route: 061
     Dates: start: 20230816
  9. MIYA-BM [Concomitant]
     Active Substance: CLOSTRIDIUM BUTYRICUM SPORES STRAIN M-55
     Indication: Prophylaxis against diarrhoea
     Route: 048
     Dates: start: 20230519, end: 20230622
  10. MIYA-BM [Concomitant]
     Active Substance: CLOSTRIDIUM BUTYRICUM SPORES STRAIN M-55
     Indication: Colitis
     Route: 048
     Dates: start: 20230519, end: 20230622
  11. MIYA-BM [Concomitant]
     Active Substance: CLOSTRIDIUM BUTYRICUM SPORES STRAIN M-55
     Route: 048
     Dates: start: 20230623, end: 20230705
  12. MIYA-BM [Concomitant]
     Active Substance: CLOSTRIDIUM BUTYRICUM SPORES STRAIN M-55
     Route: 048
     Dates: start: 20230623, end: 20230705
  13. MIYA-BM [Concomitant]
     Active Substance: CLOSTRIDIUM BUTYRICUM SPORES STRAIN M-55
     Route: 048
     Dates: start: 20230706
  14. MIYA-BM [Concomitant]
     Active Substance: CLOSTRIDIUM BUTYRICUM SPORES STRAIN M-55
     Route: 048
     Dates: start: 20230706
  15. MIYA-BM [Concomitant]
     Active Substance: CLOSTRIDIUM BUTYRICUM SPORES STRAIN M-55
     Route: 048
     Dates: start: 20230706
  16. ESOMEPRAZOLE MAGNESIUM [Concomitant]
     Active Substance: ESOMEPRAZOLE\ESOMEPRAZOLE MAGNESIUM\ESOMEPRAZOLE MAGNESIUM DIHYDRATE
     Indication: Liver disorder
     Route: 048
     Dates: start: 20230523
  17. BETAMETHASONE BUTYRATE PROPIONATE [Concomitant]
     Active Substance: BETAMETHASONE BUTYRATE PROPIONATE
     Indication: Stevens-Johnson syndrome
     Dosage: 1 APPLICATION, TWICE DAILY
     Route: 061
     Dates: start: 20230530
  18. PREDNISOLONE [Concomitant]
     Active Substance: PREDNISOLONE
     Indication: Stevens-Johnson syndrome
     Route: 048
     Dates: start: 20230526, end: 20230529
  19. PREDNISOLONE [Concomitant]
     Active Substance: PREDNISOLONE
     Indication: Colitis
     Dosage: 70 MG, OTHER, ONCE/SINGLE ADMINISTRATION
     Route: 048
     Dates: start: 20230530, end: 20230530
  20. PREDNISOLONE [Concomitant]
     Active Substance: PREDNISOLONE
     Indication: Hepatic function abnormal
     Dosage: 35 MG, TWICE DAILY, ONCE/SINGLE ADMINISTRATION
     Route: 048
     Dates: start: 20230531, end: 20230605
  21. PREDNISOLONE [Concomitant]
     Active Substance: PREDNISOLONE
     Dosage: 30 MG, TWICE DAILY, ONCE/SINGLE ADMINISTRATION
     Route: 048
     Dates: start: 20230606, end: 20230612
  22. PREDNISOLONE [Concomitant]
     Active Substance: PREDNISOLONE
     Dosage: 25 MG, TWICE DAILY, ONCE/SINGLE ADMINISTRATION
     Route: 048
     Dates: start: 20230613, end: 20230619
  23. PREDNISOLONE [Concomitant]
     Active Substance: PREDNISOLONE
     Dosage: 25 MG, ONCE DAILY, ONCE/SINGLE ADMINISTRATION
     Route: 048
     Dates: start: 20230620, end: 20230624
  24. PREDNISOLONE [Concomitant]
     Active Substance: PREDNISOLONE
     Dosage: 20 MG, TWICE DAILY, ONCE/SINGLE ADMINISTRATION
     Route: 048
     Dates: start: 20230625, end: 20230629
  25. PREDNISOLONE [Concomitant]
     Active Substance: PREDNISOLONE
     Dosage: 20 MG, ONCE DAILY, ONCE/SINGLE ADMINISTRATION
     Route: 048
     Dates: start: 20230630, end: 20230704
  26. PREDNISOLONE [Concomitant]
     Active Substance: PREDNISOLONE
     Dosage: 15 MG, ONCE DAILY, ONCE/SINGLE ADMINISTRATION
     Route: 048
     Dates: start: 20230630, end: 20230704
  27. PREDNISOLONE [Concomitant]
     Active Substance: PREDNISOLONE
     Dosage: 15 MG, TWICE DAILY, ONCE/SINGLE ADMINISTRATION
     Route: 048
     Dates: start: 20230705, end: 20230711
  28. PREDNISOLONE [Concomitant]
     Active Substance: PREDNISOLONE
     Dosage: 15 MG, ONCE DAILY, ONCE/SINGLE ADMINISTRATION
     Route: 048
     Dates: start: 20230712, end: 20230718
  29. PREDNISOLONE [Concomitant]
     Active Substance: PREDNISOLONE
     Dosage: 10 MG, TWICE DAILY, ONCE/SINGLE ADMINISTRATION
     Route: 048
     Dates: start: 20230719, end: 20230725
  30. PREDNISOLONE [Concomitant]
     Active Substance: PREDNISOLONE
     Dosage: 10 MG, ONCE DAILY, ONCE/SINGLE ADMINISTRATION
     Route: 048
     Dates: start: 20230726, end: 20230801
  31. PREDNISOLONE [Concomitant]
     Active Substance: PREDNISOLONE
     Dosage: 5 MG, ONCE DAILY, ONCE/SINGLE ADMINISTRATION
     Route: 048
     Dates: start: 20230726, end: 20230801
  32. PREDNISOLONE [Concomitant]
     Active Substance: PREDNISOLONE
     Dosage: 5 MG, TWICE DAILY, ONCE/SINGLE ADMINISTRATION
     Route: 048
     Dates: start: 20230802, end: 20230821
  33. PREDNISOLONE [Concomitant]
     Active Substance: PREDNISOLONE
     Dosage: 10 MG, TWICE DAILY, ONCE/SINGLE ADMINISTRATION
     Route: 048
     Dates: start: 20230822, end: 20230828
  34. PREDNISOLONE [Concomitant]
     Active Substance: PREDNISOLONE
     Dosage: 10 MG, ONCE DAILY, ONCE/SINGLE ADMINISTRATION
     Route: 048
     Dates: start: 20230829, end: 20230904
  35. PREDNISOLONE [Concomitant]
     Active Substance: PREDNISOLONE
     Dosage: 5 MG, ONCE DAILY, ONCE/SINGLE ADMINISTRATION
     Route: 048
     Dates: start: 20230829, end: 20230904
  36. PREDNISOLONE [Concomitant]
     Active Substance: PREDNISOLONE
     Dosage: 5 MG, ONCE DAILY, ONCE/SINGLE ADMINISTRATION
     Route: 048
     Dates: start: 20230905, end: 20230911
  37. PREDNISOLONE [Concomitant]
     Active Substance: PREDNISOLONE
     Dosage: 10 MG, OTHER, ONCE/SINGLE ADMINISTRATION
     Route: 048
     Dates: start: 20230905, end: 20230911
  38. PREDNISOLONE [Concomitant]
     Active Substance: PREDNISOLONE
     Dosage: 5 MG, OTHER, ONCE/SINGLE ADMINISTRATION
     Route: 048
     Dates: start: 20230906, end: 20230910
  39. PREDNISOLONE [Concomitant]
     Active Substance: PREDNISOLONE
     Dosage: 10 MG, ONCE DAILY, ONCE/SINGLE ADMINISTRATION
     Route: 048
     Dates: start: 20230912, end: 20231009
  40. PREDNISOLONE [Concomitant]
     Active Substance: PREDNISOLONE
     Dosage: 5 MG, ONCE DAILY, ONCE/SINGLE ADMINISTRATION
     Route: 048
     Dates: start: 20231010, end: 20231016
  41. PREDNISOLONE [Concomitant]
     Active Substance: PREDNISOLONE
     Dosage: 2.5 MG, ONCE DAILY, ONCE/SINGLE ADMINISTRATION
     Route: 048
     Dates: start: 20231017

REACTIONS (1)
  - Immune-mediated enterocolitis [Not Recovered/Not Resolved]

NARRATIVE: CASE EVENT DATE: 20231018
